FAERS Safety Report 6783578-2 (Version None)
Quarter: 2010Q2

REPORT INFORMATION
  Report Type: 
  Country: None (occurrence: None)
  Receive Date: 20100622
  Receipt Date: 20100611
  Transmission Date: 20101027
  Serious: Yes (Other)
  Sender: FDA-Public Use
  Company Number: PHHY2010BR38474

PATIENT
  Sex: Female

DRUGS (5)
  1. CATAFLAM [Suspect]
     Dosage: 1 TABLET
     Route: 048
  2. CARDIZEM [Concomitant]
     Dosage: 30 MG 3 TABLETS DAILY
     Route: 048
  3. CALCIUM CARBONATE [Concomitant]
     Indication: OSTEOPOROSIS
     Dosage: 1 MG, 1 ENVELOPE DAILY
  4. VYTORIN [Concomitant]
     Indication: BLOOD CHOLESTEROL INCREASED
     Dosage: 1 TABLET AT NIGHT
     Route: 048
  5. SIMVASTATIN [Concomitant]
     Indication: BLOOD CHOLESTEROL INCREASED
     Dosage: 10 MG

REACTIONS (9)
  - ANAPHYLACTIC SHOCK [None]
  - BLOOD CHOLESTEROL INCREASED [None]
  - FOOT FRACTURE [None]
  - HYPERSENSITIVITY [None]
  - LOSS OF CONSCIOUSNESS [None]
  - PAIN IN EXTREMITY [None]
  - PARAESTHESIA [None]
  - RESPIRATORY ARREST [None]
  - TONGUE DISORDER [None]
